FAERS Safety Report 11594014 (Version 1)
Quarter: 2015Q4

REPORT INFORMATION
  Report Type: Spontaneous
  Country: US (occurrence: US)
  Receive Date: 20151005
  Receipt Date: 20151005
  Transmission Date: 20160304
  Serious: No
  Sender: FDA-Public Use
  Company Number: US-PERRIGO-14US010119

PATIENT
  Age: 89 Year
  Sex: Female
  Weight: 74.83 kg

DRUGS (4)
  1. DOXYLAMINE SUCCINATE 25 MG 441 [Suspect]
     Active Substance: DOXYLAMINE SUCCINATE
     Indication: INSOMNIA
     Dosage: 25 MG, PRN
     Route: 048
     Dates: start: 201401
  2. VITAMIN D                          /00107901/ [Concomitant]
     Active Substance: ERGOCALCIFEROL
     Indication: ROUTINE HEALTH MAINTENANCE
     Dosage: UNK
     Route: 065
  3. CALCIUM [Concomitant]
     Active Substance: CALCIUM
     Indication: ROUTINE HEALTH MAINTENANCE
     Dosage: UNK
     Route: 065
  4. ENALAPRIL [Concomitant]
     Active Substance: ENALAPRIL
     Indication: HYPERTENSION
     Dosage: UNK
     Route: 065
     Dates: start: 2004

REACTIONS (2)
  - Incorrect drug administration duration [Unknown]
  - Drug effect decreased [Unknown]

NARRATIVE: CASE EVENT DATE: 201401
